FAERS Safety Report 10474278 (Version 1)
Quarter: 2014Q3

REPORT INFORMATION
  Report Type: Spontaneous
  Country: US (occurrence: US)
  Receive Date: 20140924
  Receipt Date: 20140924
  Transmission Date: 20150326
  Serious: No
  Sender: FDA-Public Use
  Company Number: US-GLAXOSMITHKLINE-A1054325A

PATIENT
  Age: 58 Year
  Sex: Female

DRUGS (1)
  1. IMITREX [Suspect]
     Active Substance: SUMATRIPTAN\SUMATRIPTAN SUCCINATE
     Indication: MIGRAINE
     Dosage: 5MG UNKNOWN
     Route: 065
     Dates: start: 20130620

REACTIONS (3)
  - Malaise [Unknown]
  - Adverse event [Unknown]
  - Nasopharyngitis [Unknown]
